FAERS Safety Report 9581311 (Version 2)
Quarter: 2013Q4

REPORT INFORMATION
  Report Type: Report from Study
  Country: FR (occurrence: FR)
  Receive Date: 20131002
  Receipt Date: 20131002
  Transmission Date: 20140711
  Serious: Yes (Other)
  Sender: FDA-Public Use
  Company Number: FR-SA-CAMP-1003075

PATIENT
  Age: 85 Year
  Sex: Female

DRUGS (2)
  1. CAMPATH [Suspect]
     Indication: CHRONIC LYMPHOCYTIC LEUKAEMIA RECURRENT
     Dosage: 30 MG, 3X/W
     Route: 058
     Dates: start: 20130306, end: 20130429
  2. CAMPATH [Suspect]
     Indication: CHRONIC LYMPHOCYTIC LEUKAEMIA RECURRENT
     Route: 065

REACTIONS (2)
  - Chronic lymphocytic leukaemia recurrent [Not Recovered/Not Resolved]
  - Cytomegalovirus infection [Recovered/Resolved]
